FAERS Safety Report 11175841 (Version 3)
Quarter: 2015Q3

REPORT INFORMATION
  Report Type: Spontaneous
  Country: DE (occurrence: DE)
  Receive Date: 20150609
  Receipt Date: 20150708
  Transmission Date: 20151125
  Serious: Yes (Hospitalization)
  Sender: FDA-Public Use
  Company Number: DE-JNJFOC-20150602232

PATIENT
  Age: 72 Year
  Sex: Male
  Weight: 73 kg

DRUGS (8)
  1. METOPROLOL [Concomitant]
     Active Substance: METOPROLOL
  2. ALLOPURINOL. [Concomitant]
     Active Substance: ALLOPURINOL
     Dosage: DOSE: 100 (UNITS UNSPECIFIED)
  3. IMBRUVICA [Suspect]
     Active Substance: IBRUTINIB
     Indication: CHRONIC LYMPHOCYTIC LEUKAEMIA REFRACTORY
     Route: 048
     Dates: start: 20150326
  4. RAMIPRIL. [Concomitant]
     Active Substance: RAMIPRIL
  5. IMBRUVICA [Suspect]
     Active Substance: IBRUTINIB
     Indication: CHRONIC LYMPHOCYTIC LEUKAEMIA REFRACTORY
     Route: 048
     Dates: start: 20150416
  6. METOHEXAL [Concomitant]
     Active Substance: METOPROLOL SUCCINATE
  7. ACETYLSALICYLIC ACID [Concomitant]
     Active Substance: ASPIRIN
  8. HCT [Concomitant]
     Active Substance: HYDROCHLOROTHIAZIDE

REACTIONS (9)
  - Asthenia [Unknown]
  - Transient ischaemic attack [Unknown]
  - Ascites [Unknown]
  - Oedema peripheral [Recovering/Resolving]
  - Fatigue [Unknown]
  - Gait disturbance [Unknown]
  - Blood uric acid increased [Unknown]
  - Hypertension [Unknown]
  - General physical health deterioration [Recovering/Resolving]

NARRATIVE: CASE EVENT DATE: 201504
